FAERS Safety Report 9822023 (Version 1)
Quarter: 2014Q1

REPORT INFORMATION
  Report Type: Spontaneous
  Country: IT (occurrence: None)
  Receive Date: 20140115
  Receipt Date: 20140115
  Transmission Date: 20141002
  Serious: Yes (Other)
  Sender: FDA-Public Use
  Company Number: 2115102

PATIENT
  Age: 68 Year
  Sex: Male
  Weight: 57 kg

DRUGS (1)
  1. (GEMCITABINE HYDROCHLORIDE) [Suspect]
     Indication: HEPATIC CANCER
     Dosage: 1300 MG MILLIGRAM(S), CYCLICAL, INTRAVENOUS
     Route: 042
     Dates: start: 20131029, end: 20131126

REACTIONS (1)
  - Phlebitis [None]
